FAERS Safety Report 16995198 (Version 6)
Quarter: 2021Q1

REPORT INFORMATION
  Report Type: Report from Study
  Country: FR (occurrence: FR)
  Receive Date: 20191105
  Receipt Date: 20210302
  Transmission Date: 20210419
  Serious: Yes (Hospitalization)
  Sender: FDA-Public Use
  Company Number: FR-ROCHE-2452955

PATIENT
  Age: 51 Year
  Sex: Female
  Weight: 67 kg

DRUGS (8)
  1. PEGFILGRASTIM [Suspect]
     Active Substance: PEGFILGRASTIM
     Dosage: CYCLE 5 VISIT 1
     Route: 058
     Dates: start: 20191115
  2. PEGFILGRASTIM [Suspect]
     Active Substance: PEGFILGRASTIM
     Dosage: CYCLE 5 VISIT 2
     Route: 058
     Dates: start: 20191129, end: 20191129
  3. CYCLOPHOSPHAMIDE. [Suspect]
     Active Substance: CYCLOPHOSPHAMIDE
     Indication: TRIPLE NEGATIVE BREAST CANCER
     Dosage: FOR 4 DOSES?ON 10/OCT/2019, SHE RECEIVED HER MOST RECENT DOSE OF IV CYCLOPHOSPHAMIDE (1020 MG) PRIO
     Route: 042
     Dates: start: 20191010
  4. PEGFILGRASTIM [Suspect]
     Active Substance: PEGFILGRASTIM
     Indication: TRIPLE NEGATIVE BREAST CANCER
     Dosage: CYCLE 4 VISIT 1
     Route: 058
     Dates: start: 20191011
  5. PEGFILGRASTIM [Suspect]
     Active Substance: PEGFILGRASTIM
     Dosage: CYCLE 4 VISIT 2
     Route: 058
     Dates: start: 20191031
  6. EPIRUBICIN [Suspect]
     Active Substance: EPIRUBICIN
     Indication: TRIPLE NEGATIVE BREAST CANCER
     Dosage: FOR A TOTAL OF 4 DOSES?ON 10/OCT/2019, SHE RECEIVED HER MOST RECENT DOSE OF IV EPIRUBICIN (152 MG) P
     Route: 042
     Dates: start: 20191010
  7. ATEZOLIZUMAB. [Suspect]
     Active Substance: ATEZOLIZUMAB
     Indication: TRIPLE NEGATIVE BREAST CANCER
     Dosage: FOR 10 DOSES?ON 10/OCT/2019, SHE RECEIVED HER MOST RECENT DOSE OF IV ATEZOLIZUMAB (840 MG) PRIOR TO
     Route: 042
     Dates: start: 20190719
  8. PACLITAXEL. [Suspect]
     Active Substance: PACLITAXEL
     Indication: TRIPLE NEGATIVE BREAST CANCER
     Dosage: FOR 12 WEEKS?ON 03/OCT/2019, SHE RECEIVED HER MOST RECENT DOSE OF IV PACLITAXEL (138 MG) PRIOR TO AE
     Route: 042
     Dates: start: 20190719

REACTIONS (1)
  - Adrenocorticotropic hormone deficiency [Recovered/Resolved with Sequelae]

NARRATIVE: CASE EVENT DATE: 20191020
